FAERS Safety Report 5424803-X (Version None)
Quarter: 2007Q3

REPORT INFORMATION
  Report Type: 
  Country: None (occurrence: None)
  Receive Date: 20070822
  Receipt Date: 20070814
  Transmission Date: 20080115
  Serious: Yes (Other)
  Sender: FDA-Public Use
  Company Number: 2007SP016600

PATIENT
  Age: 50 Year
  Sex: Male

DRUGS (10)
  1. PEG-INTRON [Suspect]
     Indication: HEPATITIS C
     Dosage: ; SC
     Route: 058
     Dates: start: 20070111, end: 20070703
  2. RIBAVIRIN [Suspect]
     Indication: HEPATITIS C
     Dosage: ; PO
     Route: 048
     Dates: start: 20070111, end: 20070703
  3. ALLEGRA [Concomitant]
  4. DAILY MULTIVITAMIN [Concomitant]
  5. REMERON [Concomitant]
  6. XANAX [Concomitant]
  7. FLOMAX /00889901/ [Concomitant]
  8. TRAZODONE HYDROCHLORIDE [Concomitant]
  9. SEROQUEL [Concomitant]
  10. VALIUM [Concomitant]

REACTIONS (17)
  - ABDOMINAL DISTENSION [None]
  - ANOREXIA [None]
  - BLADDER DISORDER [None]
  - CARDIAC DISORDER [None]
  - CHRONIC OBSTRUCTIVE PULMONARY DISEASE [None]
  - CONFUSIONAL STATE [None]
  - DEHYDRATION [None]
  - EMPHYSEMA [None]
  - EXCORIATION [None]
  - FALL [None]
  - FATIGUE [None]
  - INFLUENZA LIKE ILLNESS [None]
  - INSOMNIA [None]
  - MIDDLE EAR EFFUSION [None]
  - OEDEMA [None]
  - ROTATOR CUFF SYNDROME [None]
  - WEIGHT INCREASED [None]
